FAERS Safety Report 22209854 (Version 3)
Quarter: 2023Q2

REPORT INFORMATION
  Report Type: Spontaneous
  Country: US (occurrence: US)
  Receive Date: 20230414
  Receipt Date: 20230517
  Transmission Date: 20230721
  Serious: No
  Sender: FDA-Public Use
  Company Number: US-SANOFI-01568466

PATIENT
  Age: 56 Year
  Sex: Female

DRUGS (2)
  1. LANTUS SOLOSTAR [Suspect]
     Active Substance: INSULIN GLARGINE
     Indication: Type 2 diabetes mellitus
     Dosage: 20 UNITS 1X
     Dates: start: 202208
  2. CORTISONE [Concomitant]
     Active Substance: CORTISONE
     Indication: Back disorder

REACTIONS (2)
  - Injury associated with device [Unknown]
  - Blood glucose increased [Unknown]
